FAERS Safety Report 17765029 (Version 1)
Quarter: 2020Q2

REPORT INFORMATION
  Report Type: Report from Study
  Country: MX (occurrence: MX)
  Receive Date: 20200511
  Receipt Date: 20200511
  Transmission Date: 20200714
  Serious: Yes (Other)
  Sender: FDA-Public Use
  Company Number: MX-ROCHE-2583350

PATIENT
  Age: 77 Year
  Sex: Male
  Weight: 58 kg

DRUGS (4)
  1. GAZYVA [Suspect]
     Active Substance: OBINUTUZUMAB
     Dosage: FREQUENCY UNKNOWN, 4 OF 8 CYCLES WERE APPLIED
     Route: 042
     Dates: start: 20200308, end: 20200408
  2. GAZYVA [Suspect]
     Active Substance: OBINUTUZUMAB
     Indication: CHRONIC LYMPHOCYTIC LEUKAEMIA
     Dosage: END DATE:14/APR/2020
     Route: 042
     Dates: start: 20200221
  3. VENETOCLAX. [Concomitant]
     Active Substance: VENETOCLAX
     Indication: CHRONIC LYMPHOCYTIC LEUKAEMIA
     Route: 048
     Dates: start: 2019
  4. GAZYVA [Suspect]
     Active Substance: OBINUTUZUMAB
     Dosage: 3 VIALS FOR 1 CYCLE
     Route: 042
     Dates: start: 20200221

REACTIONS (4)
  - Seizure [Recovered/Resolved]
  - Seizure [Recovered/Resolved]
  - CSF lymphocyte count abnormal [Not Recovered/Not Resolved]
  - Nervous system disorder [Unknown]

NARRATIVE: CASE EVENT DATE: 20200324
